FAERS Safety Report 10222454 (Version 1)
Quarter: 2014Q1

REPORT INFORMATION
  Report Type: Spontaneous
  Country: US (occurrence: None)
  Receive Date: 20140306
  Receipt Date: 20140306
  Transmission Date: 20141002
  Serious: Yes (Hospitalization)
  Sender: FDA-Public Use
  Company Number: 163-21880-13034331

PATIENT
  Age: 86 Year
  Sex: Female

DRUGS (9)
  1. REVLIMID (LENALIDOMIDE) (25 MILLIGRAM, CAPSULES) [Suspect]
     Indication: PLASMA CELL MYELOMA
     Dosage: 21 IN 21 D; TEMPORARILY INTERRUPTED
     Route: 048
     Dates: start: 20120110
  2. ASPIR-81 [Concomitant]
  3. COMBIGAN (COMBIGAN) [Concomitant]
  4. DEXAMETHASONE (DEXAMETHASONE) [Concomitant]
  5. IRON (IRON) [Concomitant]
  6. LUTEIN (XANTOFYL) [Concomitant]
  7. PREDNISONE (PREDNISONE) [Concomitant]
  8. PRESERVISION AREDS (VITEYES) [Concomitant]
  9. SAM-E (ADEMETIONINE) [Concomitant]

REACTIONS (1)
  - Pulmonary embolism [None]
